FAERS Safety Report 6093364-7 (Version None)
Quarter: 2009Q1

REPORT INFORMATION
  Report Type: 
  Country: None (occurrence: None)
  Receive Date: 20090225
  Receipt Date: 20090225
  Transmission Date: 20090719
  Serious: No
  Sender: FDA-Public Use
  Company Number: None

PATIENT
  Sex: Male
  Weight: 63.5036 kg

DRUGS (1)
  1. VICODIN ES [Suspect]
     Dosage: 7.5/500 TWICE Q4 2008 AND PRIOR
     Dates: start: 20080101

REACTIONS (4)
  - ABDOMINAL DISCOMFORT [None]
  - CONSTIPATION [None]
  - PRODUCT QUALITY ISSUE [None]
  - TREATMENT FAILURE [None]
